FAERS Safety Report 9146899 (Version 2)
Quarter: 2013Q2

REPORT INFORMATION
  Report Type: Spontaneous
  Country: US (occurrence: US)
  Receive Date: 20130307
  Receipt Date: 20130522
  Transmission Date: 20140414
  Serious: Yes (Hospitalization)
  Sender: FDA-Public Use
  Company Number: US-ELI_LILLY_AND_COMPANY-US201302010134

PATIENT
  Age: 67 Year
  Sex: Female
  Weight: 63.04 kg

DRUGS (13)
  1. FORTEO [Suspect]
     Indication: OSTEOPOROSIS
     Dosage: 20 UG, QD
     Dates: start: 201210
  2. FORTEO [Suspect]
     Dosage: 20 UG, QD
     Dates: start: 201210
  3. METFORMIN [Concomitant]
  4. PLAVIX [Concomitant]
     Indication: ANTICOAGULANT THERAPY
     Dosage: 75 MG, UNK
  5. GLIPIZIDE [Concomitant]
  6. CALCIUM [Concomitant]
  7. VITAMIN D [Concomitant]
  8. LISINOPRIL [Concomitant]
  9. GLIMEPIRIDE [Concomitant]
  10. SIMVASTATIN [Concomitant]
  11. METOPROLOL [Concomitant]
  12. FLEXERIL [Concomitant]
     Dosage: 10 MG, UNK
     Dates: start: 20120913
  13. OXYCONTIN [Concomitant]
     Indication: INJURY

REACTIONS (6)
  - Fracture [Recovered/Resolved]
  - Myocardial infarction [Unknown]
  - Thoracic vertebral fracture [Recovered/Resolved with Sequelae]
  - Pain [Unknown]
  - Fall [Unknown]
  - Blood glucose decreased [Unknown]
